FAERS Safety Report 7256634-2 (Version None)
Quarter: 2011Q1

REPORT INFORMATION
  Report Type: 
  Country: None (occurrence: None)
  Receive Date: 20110129
  Receipt Date: 20100713
  Transmission Date: 20110831
  Serious: No
  Sender: FDA-Public Use
  Company Number: US-ABBOTT-10P-163-0656705-00

PATIENT
  Age: 56 Year
  Sex: Female

DRUGS (16)
  1. NORVASC [Concomitant]
     Indication: HYPERTENSION
  2. NITROGLYCERIN [Concomitant]
     Indication: ANGINA PECTORIS
     Dosage: DAILY, ON IN THE AM THEN OFF AT BEDTIME
  3. HUMIRA [Suspect]
     Indication: PSORIASIS
     Dates: start: 20100607
  4. EFFEXOR [Concomitant]
     Indication: DEPRESSION
  5. LOVAZA [Concomitant]
     Indication: CARDIAC DISORDER
     Dosage: DAILY
  6. LASIX [Concomitant]
     Indication: OEDEMA
  7. LANTUS [Concomitant]
     Indication: DIABETES MELLITUS
     Dosage: AT BEDTIME
  8. DIOVAN HCT [Concomitant]
     Indication: HYPERTENSION
     Dosage: 166/12.5MG DAILY
  9. ASPIRIN [Concomitant]
     Indication: PRODUCT USED FOR UNKNOWN INDICATION
  10. GLUCOVANCE [Concomitant]
     Indication: DIABETES MELLITUS
     Dosage: 1.5/250MG TWICE DAILY
  11. LORAZEPAM [Concomitant]
     Indication: DEPRESSION
     Dosage: DAILY AS NEEDED
  12. LASIX [Concomitant]
     Indication: BREAST PAIN
  13. NITROGLYCERIN [Concomitant]
     Indication: ANGINA PECTORIS
  14. TOPROL-XL [Concomitant]
     Indication: HYPERTENSION
  15. LOVASTATIN [Concomitant]
     Indication: HYPERLIPIDAEMIA
  16. PERCOCET [Concomitant]
     Indication: PAIN
     Dosage: 5/325MG, 1-2 TABS EVERY 6 HRS AS NEEDED

REACTIONS (3)
  - INJECTION SITE PAIN [None]
  - INJECTION SITE HAEMORRHAGE [None]
  - DECREASED APPETITE [None]
